FAERS Safety Report 5705310-3 (Version None)
Quarter: 2008Q2

REPORT INFORMATION
  Report Type: 
  Country: None (occurrence: None)
  Receive Date: 20080415
  Receipt Date: 20080403
  Transmission Date: 20081010
  Serious: Yes (Other)
  Sender: FDA-Public Use
  Company Number: US-RANBAXY-2008US-14217

PATIENT

DRUGS (1)
  1. ISOTRETINOIN [Suspect]
     Indication: DRUG USE FOR UNKNOWN INDICATION
     Dosage: UNK, UNK
     Route: 048

REACTIONS (7)
  - ANGER [None]
  - DRY MOUTH [None]
  - EAR CANAL INJURY [None]
  - ECZEMA [None]
  - EPISTAXIS [None]
  - SLEEP DISORDER [None]
  - TINNITUS [None]
